FAERS Safety Report 4338753-3 (Version None)
Quarter: 2004Q2

REPORT INFORMATION
  Report Type: 
  Country: None (occurrence: None)
  Receive Date: 20040409
  Receipt Date: 20040405
  Transmission Date: 20050107
  Serious: Yes (Other)
  Sender: FDA-Public Use
  Company Number: 2003138774US

PATIENT
  Sex: Female

DRUGS (1)
  1. ZYVOX [Suspect]
     Indication: INTERVERTEBRAL DISC DISORDER
     Dosage: 600 MG, BID, ORAL
     Route: 048

REACTIONS (7)
  - BALANCE DISORDER [None]
  - HAEMOGLOBIN DECREASED [None]
  - HYPOACUSIS [None]
  - NEUROPATHY [None]
  - PLATELET COUNT DECREASED [None]
  - VERTIGO [None]
  - VISION BLURRED [None]
